FAERS Safety Report 9162362 (Version 1)
Quarter: 2013Q1

REPORT INFORMATION
  Report Type: Spontaneous
  Country: US (occurrence: None)
  Receive Date: 20130225
  Receipt Date: 20130225
  Transmission Date: 20140127
  Serious: Yes (Other)
  Sender: FDA-Public Use
  Company Number: ACO_34357_2013

PATIENT
  Sex: Female

DRUGS (6)
  1. AMPYRA (DALFAMPRIDINE) TABLET, 10MG [Suspect]
     Indication: PRODUCT USED FOR UNKNOWN INDICATION
     Dates: start: 201210
  2. BABY ASPIRIN (ACETYLSALICYLIC ACID) [Concomitant]
  3. MULTIVITAMIN (VITAMINS NOS) [Concomitant]
  4. HYDROCHLOROTHIAZIDE (HYDROCHLOROTHIAZIDE) [Concomitant]
  5. DOXYCYCLINE HYCLATE (DOXYCYCLINE HYDROCHLORIDE) [Concomitant]
  6. ESTRADIOL (ESTRADIOL) [Concomitant]

REACTIONS (4)
  - Kidney infection [None]
  - Confusional state [None]
  - Pyrexia [None]
  - Back pain [None]
